FAERS Safety Report 6172007 (Version 6)
Quarter: 2013Q2

REPORT INFORMATION
  Report Type: Report from Study
  Country: DE (occurrence: DE)
  Receive Date: 20061122
  Receipt Date: 20130528
  Transmission Date: 20140414
  Serious: Yes (Death, Hospitalization, Other)
  Sender: FDA-Public Use
  Company Number: DE-JNJFOC-20061104604

PATIENT
  Age: 64 Year
  Sex: Female

DRUGS (3)
  1. INFLIXIMAB [Suspect]
     Indication: CROHN^S DISEASE
     Route: 042
     Dates: start: 20050707
  2. INFLIXIMAB [Suspect]
     Indication: CROHN^S DISEASE
     Route: 042
     Dates: start: 20050804
  3. INFLIXIMAB [Suspect]
     Indication: CROHN^S DISEASE
     Route: 042
     Dates: start: 20050623

REACTIONS (4)
  - Abdominal adhesions [Fatal]
  - Ileus [Fatal]
  - Pulmonary embolism [Unknown]
  - Abscess intestinal [Unknown]
